FAERS Safety Report 4633870-2 (Version None)
Quarter: 2005Q2

REPORT INFORMATION
  Report Type: 
  Country: None (occurrence: None)
  Receive Date: 20050408
  Receipt Date: 20041111
  Transmission Date: 20051028
  Serious: Yes (Hospitalization)
  Sender: FDA-Public Use
  Company Number: 04P-062-0277956-00

PATIENT
  Age: 37 Year
  Sex: Male
  Weight: 85 kg

DRUGS (7)
  1. AKINETON [Suspect]
     Indication: SUICIDE ATTEMPT
     Dosage: PER ORAL
     Route: 048
     Dates: start: 20041017, end: 20041017
  2. LORAZEPAM [Suspect]
     Indication: SUICIDE ATTEMPT
     Dosage: PER ORAL
     Route: 048
     Dates: start: 20041017, end: 20041017
  3. DOXEPIN HCL [Suspect]
     Indication: SUICIDE ATTEMPT
     Dosage: PER ORAL
     Route: 048
     Dates: start: 20041017, end: 20041017
  4. OLANZAPINE [Suspect]
     Indication: SUICIDE ATTEMPT
     Dosage: PER ORAL
     Route: 048
     Dates: start: 20041017, end: 20041017
  5. BUSPIRONE HCL [Suspect]
     Indication: SUICIDE ATTEMPT
     Dosage: PER ORAL
     Route: 048
     Dates: start: 20041017, end: 20041017
  6. FLUPHENAZINE HCL [Suspect]
     Indication: SUICIDE ATTEMPT
     Dosage: PER ORAL
     Route: 048
     Dates: start: 20041017, end: 20041017
  7. CARBAMAZEPINE [Suspect]
     Indication: SUICIDE ATTEMPT
     Dosage: PER ORAL
     Route: 048
     Dates: start: 20041017, end: 20041017

REACTIONS (3)
  - COMA [None]
  - DISTURBANCE IN ATTENTION [None]
  - SUICIDE ATTEMPT [None]
